FAERS Safety Report 9275446 (Version 3)
Quarter: 2013Q4

REPORT INFORMATION
  Report Type: Spontaneous
  Country: US (occurrence: US)
  Receive Date: 20130507
  Receipt Date: 20131217
  Transmission Date: 20140711
  Serious: Yes (Other)
  Sender: FDA-Public Use
  Company Number: US-PFIZER INC-2013136316

PATIENT
  Age: 69 Year
  Sex: Male
  Weight: 78.01 kg

DRUGS (4)
  1. TOVIAZ [Suspect]
     Indication: HYPERTONIC BLADDER
     Dosage: 4 MG, 1X/DAY
     Route: 048
     Dates: start: 20130418, end: 2013
  2. TOVIAZ [Suspect]
     Indication: MICTURITION URGENCY
  3. TOVIAZ [Suspect]
     Indication: CYSTITIS INTERSTITIAL
  4. LOSARTAN [Concomitant]
     Indication: HYPERTENSION
     Dosage: 100 MG, DAILY

REACTIONS (10)
  - Flank pain [Recovered/Resolved]
  - Back pain [Unknown]
  - Dysgeusia [Not Recovered/Not Resolved]
  - Weight decreased [Unknown]
  - Constipation [Recovered/Resolved]
  - Dry skin [Recovered/Resolved]
  - Dry mouth [Unknown]
  - Dry eye [Unknown]
  - Drug ineffective [Unknown]
  - Ageusia [Unknown]
